FAERS Safety Report 23353762 (Version 1)
Quarter: 2024Q1

REPORT INFORMATION
  Report Type: Spontaneous
  Country: US (occurrence: US)
  Receive Date: 20240101
  Receipt Date: 20240101
  Transmission Date: 20240410
  Serious: No
  Sender: FDA-Public Use
  Company Number: US-PURDUE PHARMA-USA-2023-0305539

PATIENT
  Age: 23 Year
  Sex: Female
  Weight: 54.43 kg

DRUGS (1)
  1. BUPRENORPHINE [Suspect]
     Active Substance: BUPRENORPHINE
     Indication: Pain management
     Dosage: 5 MCG, WEEKLY (ONCE A WEEK)
     Route: 062
     Dates: start: 20231026, end: 20231027

REACTIONS (5)
  - Paranoia [Unknown]
  - Nervousness [Unknown]
  - Drug ineffective [Unknown]
  - Pain [Unknown]
  - Product use issue [Unknown]

NARRATIVE: CASE EVENT DATE: 20231001
